FAERS Safety Report 5510432-6 (Version None)
Quarter: 2007Q4

REPORT INFORMATION
  Report Type: 
  Country: None (occurrence: None)
  Receive Date: 20071108
  Receipt Date: 20071029
  Transmission Date: 20080405
  Serious: Yes (Other)
  Sender: FDA-Public Use
  Company Number: JP-PFIZER INC-2007092748

PATIENT
  Age: 62 Year
  Sex: Female

DRUGS (2)
  1. LIPITOR [Suspect]
     Indication: HYPERCHOLESTEROLAEMIA
     Dosage: DAILY DOSE:5MG
     Route: 048
     Dates: start: 20070925, end: 20071019
  2. NORVASC [Concomitant]
     Dosage: DAILY DOSE:5MG
     Route: 048

REACTIONS (2)
  - CONVULSION [None]
  - MUSCLE SPASMS [None]
